FAERS Safety Report 15739402 (Version 1)
Quarter: 2018Q4

REPORT INFORMATION
  Report Type: Spontaneous
  Country: US (occurrence: US)
  Receive Date: 20181218
  Receipt Date: 20181218
  Transmission Date: 20190205
  Serious: Yes (Other)
  Sender: FDA-Public Use
  Company Number: None

PATIENT
  Age: 60 Year
  Sex: Female
  Weight: 76.95 kg

DRUGS (7)
  1. IBUPROFEN. [Concomitant]
     Active Substance: IBUPROFEN
  2. OXYCODONE [Concomitant]
     Active Substance: OXYCODONE
  3. MULTIVITAMINS [Concomitant]
     Active Substance: VITAMINS
  4. NAPROXEN. [Concomitant]
     Active Substance: NAPROXEN
  5. CAPECITABINE. [Suspect]
     Active Substance: CAPECITABINE
     Indication: BREAST CANCER
     Route: 048
     Dates: start: 20181129
  6. MAGNESIUM [Concomitant]
     Active Substance: MAGNESIUM
  7. FLAXSEED [Concomitant]
     Active Substance: FLAX SEED

REACTIONS (2)
  - Dyspnoea [None]
  - Pulmonary oedema [None]
